FAERS Safety Report 15287893 (Version 4)
Quarter: 2021Q1

REPORT INFORMATION
  Report Type: Spontaneous
  Country: US (occurrence: US)
  Receive Date: 20180817
  Receipt Date: 20210127
  Transmission Date: 20210419
  Serious: Yes (Hospitalization, Other)
  Sender: FDA-Public Use
  Company Number: US-PFIZER INC-2015133475

PATIENT
  Age: 71 Year
  Sex: Female
  Weight: 95 kg

DRUGS (13)
  1. MIRALAX [Concomitant]
     Active Substance: POLYETHYLENE GLYCOL 3350
     Dosage: UNK, DAILY (1 SCOOP)
     Route: 048
     Dates: start: 20161017
  2. ERGOCALCIFEROL. [Concomitant]
     Active Substance: ERGOCALCIFEROL
     Dosage: 50000 IU, 2X/WEEK
     Route: 048
     Dates: start: 20160922
  3. BENEFIBER DRINK MIX [Concomitant]
     Dosage: UNK, DAILY (1 TABLESPOON)
     Route: 048
  4. CLOBETASOL PROPIONATE. [Concomitant]
     Active Substance: CLOBETASOL PROPIONATE
     Dosage: UNK, AS NEEDED (EVERYDAY)
     Dates: start: 20160921
  5. DULERA [Concomitant]
     Active Substance: FORMOTEROL FUMARATE DIHYDRATE\MOMETASONE FUROATE
     Dosage: UNK, 2X/DAY (ONE AEROSOL INHALATION)
     Dates: start: 20161103
  6. VENTOLIN HFA [Concomitant]
     Active Substance: ALBUTEROL SULFATE
     Dosage: UNK UNK, AS NEEDED (TWO AEROSOL SOLN INHALATION, EVERY 4 HRS)
     Dates: start: 20161024
  7. LYRICA [Suspect]
     Active Substance: PREGABALIN
     Indication: OSTEOARTHRITIS
  8. ALPRAZOLAM. [Concomitant]
     Active Substance: ALPRAZOLAM
     Dosage: 2 MG, 1X/DAY (EVERY BEDTIME)
     Route: 048
     Dates: start: 20161118
  9. MORPHINE SULFATE. [Concomitant]
     Active Substance: MORPHINE SULFATE
     Dosage: 60 MG, 2X/DAY
     Route: 048
  10. MORPHINE SULFATE. [Concomitant]
     Active Substance: MORPHINE SULFATE
     Dosage: 60 MG, AS NEEDED (THREE TIMES A DAY)
     Route: 048
     Dates: start: 20161118
  11. ALBUTEROL SULFATE. [Concomitant]
     Active Substance: ALBUTEROL SULFATE
     Indication: WHEEZING
  12. LYRICA [Suspect]
     Active Substance: PREGABALIN
     Indication: FIBROMYALGIA
     Dosage: 150 MG, 3X/DAY
     Route: 048
     Dates: start: 20161130
  13. ALBUTEROL SULFATE. [Concomitant]
     Active Substance: ALBUTEROL SULFATE
     Indication: CHRONIC OBSTRUCTIVE PULMONARY DISEASE
     Dosage: UNK, AS NEEDED (ONE NEBULIZED SOLN INHALATION, EVERY 4 HRS)
     Dates: start: 20161024

REACTIONS (14)
  - Loss of consciousness [Recovering/Resolving]
  - Foot fracture [Unknown]
  - Near death experience [Unknown]
  - Myocardial infarction [Unknown]
  - Mental impairment [Unknown]
  - Intentional product misuse [Unknown]
  - Fall [Unknown]
  - Infection [Unknown]
  - Unresponsive to stimuli [Recovered/Resolved with Sequelae]
  - Spinal fracture [Unknown]
  - Pyrexia [Unknown]
  - Speech disorder [Recovering/Resolving]
  - Withdrawal syndrome [Not Recovered/Not Resolved]
  - Feeling abnormal [Not Recovered/Not Resolved]

NARRATIVE: CASE EVENT DATE: 201807
